FAERS Safety Report 17364121 (Version 1)
Quarter: 2020Q1

REPORT INFORMATION
  Report Type: Report from Study
  Country: None (occurrence: AR)
  Receive Date: 20200204
  Receipt Date: 20200204
  Transmission Date: 20200409
  Serious: Yes (Hospitalization)
  Sender: FDA-Public Use
  Company Number: AR-ABBVIE-19K-007-2988907-00

PATIENT
  Sex: Male

DRUGS (1)
  1. VENCLEXTA [Suspect]
     Active Substance: VENETOCLAX
     Indication: CHRONIC LYMPHOCYTIC LEUKAEMIA
     Route: 048
     Dates: start: 20190909

REACTIONS (2)
  - Lung disorder [Unknown]
  - Bronchitis [Recovering/Resolving]

NARRATIVE: CASE EVENT DATE: 2019
